FAERS Safety Report 12794982 (Version 1)
Quarter: 2016Q3

REPORT INFORMATION
  Report Type: Spontaneous
  Country: FR (occurrence: FR)
  Receive Date: 20160929
  Receipt Date: 20160929
  Transmission Date: 20161109
  Serious: Yes (Hospitalization)
  Sender: FDA-Public Use
  Company Number: FR-SA-2016SA174118

PATIENT
  Age: 51 Year
  Sex: Female
  Weight: 67 kg

DRUGS (11)
  1. ROVAMYCINE [Suspect]
     Active Substance: SPIRAMYCIN
     Indication: CARDIAC FAILURE
     Route: 048
     Dates: start: 201608
  2. EPIRUBICIN [Suspect]
     Active Substance: EPIRUBICIN
     Dosage: FREQUENCY- EVERY 14 DAYS
     Route: 042
     Dates: start: 20160506, end: 20160715
  3. NIVESTIM [Suspect]
     Active Substance: FILGRASTIM
     Route: 042
     Dates: start: 20160720, end: 20160720
  4. OMEPRAZOLE. [Concomitant]
     Active Substance: OMEPRAZOLE
     Dates: start: 201607
  5. TAZOBACTAM [Concomitant]
     Active Substance: TAZOBACTAM
  6. CEFTRIAXONE/AMIKACIN [Concomitant]
     Dates: end: 20160724
  7. VANCOMYCINE [Concomitant]
     Active Substance: VANCOMYCIN
     Dates: start: 20160724
  8. PIPERACILLIN [Concomitant]
     Active Substance: PIPERACILLIN
  9. ROVAMYCINE [Suspect]
     Active Substance: SPIRAMYCIN
     Indication: CARDIAC FAILURE
     Dosage: FREQUENCY - EVERY 14 DAYS
     Route: 042
     Dates: start: 20160727, end: 20160803
  10. DOCETAXEL. [Suspect]
     Active Substance: DOCETAXEL
     Route: 042
     Dates: start: 20160506, end: 20160715
  11. GENTAMICIN. [Concomitant]
     Active Substance: GENTAMICIN
     Dates: start: 20160724

REACTIONS (3)
  - Rash erythematous [Recovered/Resolved]
  - Papule [Recovered/Resolved]
  - Blister [Recovered/Resolved]

NARRATIVE: CASE EVENT DATE: 20160802
